FAERS Safety Report 7790166-8 (Version None)
Quarter: 2011Q3

REPORT INFORMATION
  Report Type: 
  Country: None (occurrence: None)
  Receive Date: 20110930
  Receipt Date: 20101006
  Transmission Date: 20111222
  Serious: No
  Sender: FDA-Public Use
  Company Number: US-ASTRAZENECA-2010SE47474

PATIENT

DRUGS (2)
  1. ARIMIDEX [Suspect]
     Route: 048
  2. ADRIAMYCIN PFS [Concomitant]

REACTIONS (1)
  - DEAFNESS [None]
